FAERS Safety Report 8091845-8 (Version None)
Quarter: 2012Q1

REPORT INFORMATION
  Report Type: 
  Country: None (occurrence: None)
  Receive Date: 20120129
  Receipt Date: 20111114
  Transmission Date: 20120608
  Serious: No
  Sender: FDA-Public Use
  Company Number: US-ABBOTT-11P-163-0874141-00

PATIENT
  Age: 66 Year
  Sex: Female

DRUGS (4)
  1. MESALAMINE [Concomitant]
     Dosage: AT NIGHT
  2. MESALAMINE [Concomitant]
     Indication: PRODUCT USED FOR UNKNOWN INDICATION
     Dosage: PILLS
  3. SIMVASTATIN [Concomitant]
     Indication: PRODUCT USED FOR UNKNOWN INDICATION
     Dosage: 1/2 PILL
  4. HUMIRA [Suspect]
     Indication: COLITIS ULCERATIVE
     Dates: start: 20110201

REACTIONS (8)
  - DIZZINESS [None]
  - HAEMATOCHEZIA [None]
  - FATIGUE [None]
  - ASTHENIA [None]
  - FEELING ABNORMAL [None]
  - DYSPNOEA [None]
  - UPPER RESPIRATORY TRACT INFECTION [None]
  - MUSCULAR WEAKNESS [None]
